FAERS Safety Report 17327043 (Version 1)
Quarter: 2020Q1

REPORT INFORMATION
  Report Type: Spontaneous
  Country: US (occurrence: US)
  Receive Date: 20200127
  Receipt Date: 20200127
  Transmission Date: 20200409
  Serious: No
  Sender: FDA-Public Use
  Company Number: US-REGENERON PHARMACEUTICALS, INC.-2019-37150

PATIENT

DRUGS (1)
  1. EYLEA [Suspect]
     Active Substance: AFLIBERCEPT
     Indication: RETINAL VEIN OCCLUSION
     Dosage: UNK, RIGHT EYE
     Route: 031
     Dates: start: 20190612

REACTIONS (2)
  - Unevaluable event [Unknown]
  - Eye pain [Unknown]

NARRATIVE: CASE EVENT DATE: 20190612
